FAERS Safety Report 18377704 (Version 1)
Quarter: 2020Q4

REPORT INFORMATION
  Report Type: Spontaneous
  Country: US (occurrence: US)
  Receive Date: 20201013
  Receipt Date: 20201013
  Transmission Date: 20210114
  Serious: No
  Sender: FDA-Public Use
  Company Number: US-ALLERGAN-2035366US

PATIENT
  Sex: Female

DRUGS (2)
  1. TRIPTAN [Concomitant]
     Indication: MIGRAINE
  2. UBRELVY [Suspect]
     Active Substance: UBROGEPANT
     Indication: MIGRAINE
     Dosage: 50 MG (ON 2-3 DIFFERENT DAYS)
     Route: 048

REACTIONS (2)
  - Dry mouth [Recovered/Resolved]
  - Thirst [Recovered/Resolved]
